FAERS Safety Report 11212035 (Version 1)
Quarter: 2015Q2

REPORT INFORMATION
  Report Type: Spontaneous
  Country: US (occurrence: None)
  Receive Date: 20150622
  Receipt Date: 20150622
  Transmission Date: 20150821
  Serious: No
  Sender: FDA-Public Use
  Company Number: None

PATIENT
  Age: 18 Year
  Sex: Male
  Weight: 97.3 kg

DRUGS (1)
  1. DAUNORUBICIN [Suspect]
     Active Substance: DAUNORUBICIN
     Dates: start: 20150612

REACTIONS (12)
  - Pyrexia [None]
  - Tremor [None]
  - Hyperphosphataemia [None]
  - Vomiting [None]
  - Urine output decreased [None]
  - Acute kidney injury [None]
  - Fluid overload [None]
  - Paraesthesia [None]
  - Hyperkalaemia [None]
  - Blood creatinine increased [None]
  - Hypoaesthesia [None]
  - Tumour lysis syndrome [None]

NARRATIVE: CASE EVENT DATE: 20150613
